FAERS Safety Report 7302929-3 (Version None)
Quarter: 2011Q1

REPORT INFORMATION
  Report Type: 
  Country: None (occurrence: None)
  Receive Date: 20110218
  Receipt Date: 20110209
  Transmission Date: 20110831
  Serious: Yes (Hospitalization)
  Sender: FDA-Public Use
  Company Number: FR-ASTRAZENECA-2011SE08131

PATIENT
  Age: 82 Year
  Sex: Female

DRUGS (3)
  1. IRESSA [Suspect]
     Route: 048
     Dates: start: 20101208, end: 20101230
  2. APROVEL [Concomitant]
  3. LIPANTHYL [Concomitant]

REACTIONS (1)
  - DISSEMINATED INTRAVASCULAR COAGULATION [None]
